FAERS Safety Report 19364183 (Version 1)
Quarter: 2021Q2

REPORT INFORMATION
  Report Type: Spontaneous
  Country: US (occurrence: US)
  Receive Date: 20210603
  Receipt Date: 20210603
  Transmission Date: 20210717
  Serious: Yes (Life-Threatening, Hospitalization, Other)
  Sender: FDA-Public Use
  Company Number: None

PATIENT
  Age: 5 Year
  Sex: Male
  Weight: 19.96 kg

DRUGS (2)
  1. EPINEPHRINE AUTO INJECTOR [Suspect]
     Active Substance: EPINEPHRINE
     Indication: ANAPHYLACTIC REACTION
     Dosage: ?          QUANTITY:1 DF DOSAGE FORM;?
     Dates: start: 20210528, end: 20210528
  2. KIDS MULTIVITAMIN [Concomitant]

REACTIONS (4)
  - Device malfunction [None]
  - Skin laceration [None]
  - Needle issue [None]
  - Incorrect dose administered [None]

NARRATIVE: CASE EVENT DATE: 20210528
